FAERS Safety Report 5209542-2 (Version None)
Quarter: 2007Q1

REPORT INFORMATION
  Report Type: 
  Country: None (occurrence: None)
  Receive Date: 20070116
  Receipt Date: 20070104
  Transmission Date: 20070707
  Serious: Yes (Hospitalization)
  Sender: FDA-Public Use
  Company Number: FR-PFIZER INC-2007002394

PATIENT
  Age: 88 Year
  Sex: Female
  Weight: 40 kg

DRUGS (6)
  1. NEURONTIN [Suspect]
     Route: 048
     Dates: start: 20061102, end: 20061106
  2. URBANYL [Suspect]
     Route: 048
     Dates: start: 20061101, end: 20061111
  3. LAMICTAL [Suspect]
     Route: 048
     Dates: start: 20061101, end: 20061110
  4. HEMIGOXINE NATIVELLE [Concomitant]
     Route: 048
  5. RENITEC [Concomitant]
     Route: 048
  6. PARACETAMOL [Concomitant]
     Route: 048

REACTIONS (1)
  - LIVER FUNCTION TEST ABNORMAL [None]
